FAERS Safety Report 20812360 (Version 1)
Quarter: 2022Q2

REPORT INFORMATION
  Report Type: Spontaneous
  Country: CZ (occurrence: CZ)
  Receive Date: 20220511
  Receipt Date: 20220511
  Transmission Date: 20220721
  Serious: Yes (Other)
  Sender: FDA-Public Use
  Company Number: CZ-SUN PHARMACEUTICAL INDUSTRIES LTD-2022R1-336039

PATIENT
  Age: 27 Year
  Sex: Female

DRUGS (19)
  1. AMPICILLIN [Suspect]
     Active Substance: AMPICILLIN
     Indication: Escherichia infection
     Route: 065
  2. AMPICILLIN SODIUM\SULBACTAM SODIUM [Suspect]
     Active Substance: AMPICILLIN SODIUM\SULBACTAM SODIUM
     Indication: Staphylococcal infection
     Route: 042
  3. CHOLECALCIFEROL [Suspect]
     Active Substance: CHOLECALCIFEROL
     Indication: Vitamin D
     Dosage: 1500 IU
     Route: 048
  4. DESMOPRESSIN [Suspect]
     Active Substance: DESMOPRESSIN
     Indication: Diabetes insipidus
     Dosage: 60 MICROGRAM, DAILY
     Route: 065
  5. DESMOPRESSIN [Suspect]
     Active Substance: DESMOPRESSIN
     Dosage: 90 MICROGRAM, DAILY
     Route: 065
  6. LEVOTHYROXINE [Suspect]
     Active Substance: LEVOTHYROXINE
     Indication: Hypothalamic pituitary adrenal axis suppression
     Dosage: 137 MCG 2 DAYS PER WEEK
  7. LEVOTHYROXINE [Suspect]
     Active Substance: LEVOTHYROXINE
     Dosage: 125 MCG 5 DAYS PER WEEK
  8. LEVOTHYROXINE [Suspect]
     Active Substance: LEVOTHYROXINE
     Dosage: 100 MCG ON HD 25-29
  9. LEVOTHYROXINE [Suspect]
     Active Substance: LEVOTHYROXINE
     Dosage: 75 MCG ON HD 17-24
  10. MEROPENEM [Suspect]
     Active Substance: MEROPENEM
     Indication: Klebsiella infection
     Dosage: UNK
     Route: 065
  11. MEROPENEM [Suspect]
     Active Substance: MEROPENEM
     Indication: Escherichia infection
  12. NOREPINEPHRINE [Suspect]
     Active Substance: NOREPINEPHRINE
     Indication: Mean arterial pressure
     Route: 042
  13. PIPERACILLIN SODIUM\TAZOBACTAM SODIUM [Suspect]
     Active Substance: PIPERACILLIN SODIUM\TAZOBACTAM SODIUM
     Indication: Klebsiella infection
     Route: 042
  14. BETAMETHASONE [Suspect]
     Active Substance: BETAMETHASONE
     Indication: Abnormal organ maturation
     Route: 065
  15. DOPAMINE [Suspect]
     Active Substance: DOPAMINE HYDROCHLORIDE
     Indication: Mean arterial pressure
     Route: 065
  16. HYDROCORTISONE [Suspect]
     Active Substance: HYDROCORTISONE
     Indication: Hypothalamic pituitary adrenal axis suppression
     Dosage: 100 MILLIGRAM, BID
     Route: 042
  17. HYDROCORTISONE [Suspect]
     Active Substance: HYDROCORTISONE
     Dosage: 50 MILLIGRAM, DAILY
     Route: 042
  18. HYDROCORTISONE [Suspect]
     Active Substance: HYDROCORTISONE
     Dosage: 30 MILLIGRAM, DAILY( 20 MG IN MORNING AND 10 MG IN NIGHT)
     Route: 042
  19. NIFURATEL [Suspect]
     Active Substance: NIFURATEL
     Indication: Vaginal infection
     Route: 065

REACTIONS (5)
  - Exposure during pregnancy [Unknown]
  - Pneumonia [Unknown]
  - Urinary tract infection [Unknown]
  - Vaginal infection [Unknown]
  - Premature delivery [Unknown]
